FAERS Safety Report 11799826 (Version 1)
Quarter: 2015Q4

REPORT INFORMATION
  Report Type: Spontaneous
  Country: RU (occurrence: RU)
  Receive Date: 20151203
  Receipt Date: 20151203
  Transmission Date: 20160305
  Serious: Yes (Other)
  Sender: FDA-Public Use
  Company Number: RU-JNJFOC-20151201504

PATIENT
  Sex: Female

DRUGS (2)
  1. XARELTO [Suspect]
     Active Substance: RIVAROXABAN
     Indication: CEREBROVASCULAR ACCIDENT PROPHYLAXIS
     Route: 048
  2. XARELTO [Suspect]
     Active Substance: RIVAROXABAN
     Indication: ATRIAL FIBRILLATION
     Route: 048

REACTIONS (5)
  - Thrombosis [Unknown]
  - Off label use [Unknown]
  - Postoperative thrombosis [Not Recovered/Not Resolved]
  - Coronary artery bypass [Unknown]
  - Therapeutic product ineffective [Unknown]
